FAERS Safety Report 4676413-X (Version None)
Quarter: 2005Q2

REPORT INFORMATION
  Report Type: 
  Country: None (occurrence: None)
  Receive Date: 20050527
  Receipt Date: 20050429
  Transmission Date: 20051028
  Serious: Yes (Death)
  Sender: FDA-Public Use
  Company Number: US-MERCK-0505USA00041

PATIENT
  Age: 82 Year
  Sex: Female
  Weight: 39 kg

DRUGS (6)
  1. FOSAMAX [Suspect]
     Indication: OSTEOPOROSIS
     Route: 048
     Dates: start: 20050301, end: 20050301
  2. FOSAMAX [Suspect]
     Route: 048
  3. HALDOL [Concomitant]
     Route: 030
  4. VISTARIL [Concomitant]
     Route: 048
  5. CARDIZEM [Concomitant]
     Route: 048
  6. ASPIRIN [Concomitant]
     Route: 048

REACTIONS (4)
  - ACCIDENTAL OVERDOSE [None]
  - DEATH [None]
  - INCORRECT DOSE ADMINISTERED [None]
  - NO ADVERSE EFFECT [None]
